FAERS Safety Report 7867623-9 (Version None)
Quarter: 2011Q4

REPORT INFORMATION
  Report Type: 
  Country: None (occurrence: None)
  Receive Date: 20111028
  Receipt Date: 20111024
  Transmission Date: 20120403
  Serious: Yes (Death, Other)
  Sender: FDA-Public Use
  Company Number: PHHY2011DK92695

PATIENT
  Sex: Female

DRUGS (2)
  1. INFLUENZA VACCINE [Concomitant]
     Dates: start: 19690123
  2. TEGRETOL [Suspect]
     Indication: NEURALGIA
     Dosage: 1 DF, BID
     Route: 048

REACTIONS (6)
  - DECREASED APPETITE [None]
  - NAUSEA [None]
  - DIZZINESS [None]
  - VOMITING [None]
  - HYPERVENTILATION [None]
  - DEATH [None]
